FAERS Safety Report 6377260-3 (Version None)
Quarter: 2009Q3

REPORT INFORMATION
  Report Type: 
  Country: None (occurrence: None)
  Receive Date: 20090924
  Receipt Date: 20090924
  Transmission Date: 20100115
  Serious: Yes (Other)
  Sender: FDA-Public Use
  Company Number: None

PATIENT
  Age: 67 Year
  Sex: Male
  Weight: 111.13 kg

DRUGS (1)
  1. POSACONAZOLE [Suspect]
     Indication: UPPER RESPIRATORY TRACT INFECTION
     Dosage: 5 ML TID PO
     Route: 048
     Dates: start: 20081222, end: 20090327

REACTIONS (1)
  - THROMBOCYTOPENIA [None]
